FAERS Safety Report 19484413 (Version 3)
Quarter: 2021Q3

REPORT INFORMATION
  Report Type: Report from Study
  Country: US (occurrence: US)
  Receive Date: 20210701
  Receipt Date: 20210820
  Transmission Date: 20211014
  Serious: No
  Sender: FDA-Public Use
  Company Number: NVSC2021US138026

PATIENT
  Sex: Female

DRUGS (1)
  1. ENTRESTO [Suspect]
     Active Substance: SACUBITRIL\VALSARTAN
     Indication: PRODUCT USED FOR UNKNOWN INDICATION
     Dosage: 100 MG, BID (49/51 MG)
     Route: 048

REACTIONS (9)
  - Cough [Unknown]
  - Asthma [Unknown]
  - Decreased appetite [Unknown]
  - Product dose omission issue [Unknown]
  - Visual impairment [Unknown]
  - Bradyphrenia [Unknown]
  - Arthralgia [Unknown]
  - Product availability issue [Unknown]
  - Bronchitis [Unknown]
